FAERS Safety Report 14211931 (Version 1)
Quarter: 2017Q4

REPORT INFORMATION
  Report Type: Spontaneous
  Country: US (occurrence: US)
  Receive Date: 20171121
  Receipt Date: 20171121
  Transmission Date: 20180321
  Serious: Yes (Hospitalization, Disabling)
  Sender: FDA-Public Use
  Company Number: US-LEADIANT BIOSCIENCES INC-2016STPI001001

PATIENT

DRUGS (14)
  1. MINOXIDIL. [Concomitant]
     Active Substance: MINOXIDIL
  2. DIALYVITE [Concomitant]
     Active Substance: ASCORBIC ACID\BIOTIN\CALCIUM PANTOTHENATE\COBALAMIN\FOLIC ACID\NIACINAMIDE\PYRIDOXINE HYDROCHLORIDE\RIBOFLAVIN\THIAMINE MONONITRATE
  3. VITAMIN D                          /00107901/ [Concomitant]
     Active Substance: ERGOCALCIFEROL
  4. LABETALOL [Concomitant]
     Active Substance: LABETALOL\LABETALOL HYDROCHLORIDE
  5. LEVOTHYROXIN [Concomitant]
     Active Substance: LEVOTHYROXINE
  6. PROCYSBI [Concomitant]
     Active Substance: CYSTEAMINE BITARTRATE
  7. CYSTARAN [Suspect]
     Active Substance: CYSTEAMINE HYDROCHLORIDE
     Indication: CORNEAL DEPOSITS
     Dosage: 1 GTT, QID
     Route: 047
     Dates: start: 20150901
  8. KEPPRA [Concomitant]
     Active Substance: LEVETIRACETAM
  9. GABAPENTIN. [Concomitant]
     Active Substance: GABAPENTIN
  10. HCTZ [Concomitant]
     Active Substance: HYDROCHLOROTHIAZIDE
  11. ATROPINE. [Concomitant]
     Active Substance: ATROPINE
  12. LISINOPRIL. [Concomitant]
     Active Substance: LISINOPRIL
  13. PROCARDIA [Concomitant]
     Active Substance: NIFEDIPINE
  14. ZYRTEC [Concomitant]
     Active Substance: CETIRIZINE HYDROCHLORIDE

REACTIONS (6)
  - Corneal scar [Unknown]
  - Corneal opacity [Unknown]
  - Angle closure glaucoma [Unknown]
  - Blindness [Unknown]
  - Cataract [Unknown]
  - Conjunctivitis [Unknown]

NARRATIVE: CASE EVENT DATE: 20160917
